FAERS Safety Report 4940416-8 (Version None)
Quarter: 2006Q1

REPORT INFORMATION
  Report Type: 
  Country: None (occurrence: None)
  Receive Date: 20060131
  Receipt Date: 20051212
  Transmission Date: 20060701
  Serious: No
  Sender: FDA-Public Use
  Company Number: 200520500US

PATIENT

DRUGS (3)
  1. KETEK [Suspect]
     Dosage: PO
     Route: 048
  2. DIOVAN [Concomitant]
  3. ZOLOFT [Concomitant]

REACTIONS (1)
  - HEPATIC ENZYME INCREASED [None]
